APPROVED DRUG PRODUCT: DICLOFENAC SODIUM
Active Ingredient: DICLOFENAC SODIUM
Strength: 1.5%
Dosage Form/Route: SOLUTION;TOPICAL
Application: A202027 | Product #001
Applicant: APOTEX INC
Approved: May 27, 2014 | RLD: No | RS: No | Type: DISCN